FAERS Safety Report 6476162-1 (Version None)
Quarter: 2009Q4

REPORT INFORMATION
  Report Type: 
  Country: None (occurrence: None)
  Receive Date: 20091204
  Receipt Date: 20091130
  Transmission Date: 20100525
  Serious: Yes (Hospitalization)
  Sender: FDA-Public Use
  Company Number: US-JNJCH-2009031181

PATIENT
  Age: 40 Year
  Sex: Female

DRUGS (1)
  1. ASPIRIN [Suspect]
     Indication: DRUG USE FOR UNKNOWN INDICATION
     Dosage: TEXT:UNSPECIFIED
     Route: 065

REACTIONS (5)
  - BLOOD PRESSURE INCREASED [None]
  - RALES [None]
  - SYSTEMIC INFLAMMATORY RESPONSE SYNDROME [None]
  - THERAPEUTIC AGENT TOXICITY [None]
  - WHEEZING [None]
